FAERS Safety Report 4682764-5 (Version None)
Quarter: 2005Q2

REPORT INFORMATION
  Report Type: 
  Country: None (occurrence: None)
  Receive Date: 20050602
  Receipt Date: 20050420
  Transmission Date: 20051028
  Serious: No
  Sender: FDA-Public Use
  Company Number: USA050496303

PATIENT
  Age: 30 Year
  Sex: Male

DRUGS (5)
  1. CYMBALTA [Suspect]
     Dosage: 60 MG
     Dates: start: 20050301
  2. PRILOSEC (OMEPRAZOLE RATIOPHARM) [Concomitant]
  3. KLONOPIN [Concomitant]
  4. ZOLOFT [Concomitant]
  5. VICODIN [Concomitant]

REACTIONS (1)
  - DYSTONIA [None]
